FAERS Safety Report 15781165 (Version 4)
Quarter: 2019Q4

REPORT INFORMATION
  Report Type: Spontaneous
  Country: FR (occurrence: GB)
  Receive Date: 20190102
  Receipt Date: 20191115
  Transmission Date: 20200122
  Serious: Yes (Other)
  Sender: FDA-Public Use
  Company Number: RU-SA-2018SA394583

PATIENT
  Age: 6 Year
  Sex: Male

DRUGS (13)
  1. ANTI-THYMOCYTE GLOBULIN (RABBIT) NOS [Suspect]
     Active Substance: LAPINE T-LYMPHOCYTE IMMUNE GLOBULIN
     Indication: BONE MARROW CONDITIONING REGIMEN
     Dosage: UNK
     Route: 065
  2. MYCOPHENOLATE MOFETIL. [Suspect]
     Active Substance: MYCOPHENOLATE MOFETIL
     Indication: PROPHYLAXIS AGAINST GRAFT VERSUS HOST DISEASE
  3. ETHAMBUTOL [Concomitant]
     Active Substance: ETHAMBUTOL HYDROCHLORIDE
  4. INTERFERON GAMMA NOS [Concomitant]
     Active Substance: INTERFERON GAMMA
     Indication: MYCOBACTERIUM AVIUM COMPLEX INFECTION
  5. MOXIFLOXACIN. [Concomitant]
     Active Substance: MOXIFLOXACIN
  6. LINEZOLID. [Concomitant]
     Active Substance: LINEZOLID
  7. ALKERAN [Suspect]
     Active Substance: MELPHALAN
     Indication: BONE MARROW CONDITIONING REGIMEN
     Dosage: TOTAL DOSE 140 MG / M2
     Route: 042
  8. CYCLOSPORIN A [Suspect]
     Active Substance: CYCLOSPORINE
     Indication: PROPHYLAXIS AGAINST GRAFT VERSUS HOST DISEASE
  9. AMIKACIN. [Concomitant]
     Active Substance: AMIKACIN
  10. ALEMTUZUMAB [Suspect]
     Active Substance: ALEMTUZUMAB
     Indication: ALLOGENIC STEM CELL TRANSPLANTATION
     Dosage: 1MG/KG
     Route: 041
  11. FLUDARABINE PHOSPHATE. [Suspect]
     Active Substance: FLUDARABINE PHOSPHATE
     Indication: BONE MARROW CONDITIONING REGIMEN
     Dosage: 150 MG / M2
     Route: 041
  12. ISONIAZID. [Concomitant]
     Active Substance: ISONIAZID
  13. CIPROFLOXACIN. [Concomitant]
     Active Substance: CIPROFLOXACIN

REACTIONS (6)
  - Neutropenia [Unknown]
  - Herpes zoster meningoencephalitis [Unknown]
  - Papilloma [Unknown]
  - Mucosal inflammation [Unknown]
  - Herpes zoster [Unknown]
  - Product use issue [Unknown]
